FAERS Safety Report 18141398 (Version 1)
Quarter: 2020Q3

REPORT INFORMATION
  Report Type: Spontaneous
  Country: US (occurrence: US)
  Receive Date: 20200812
  Receipt Date: 20200812
  Transmission Date: 20201103
  Serious: Yes (Death, Disabling, Other)
  Sender: FDA-Public Use
  Company Number: US-PURDUE-USA-2003-0005322

PATIENT
  Age: 23 Year
  Sex: Male
  Weight: 82.86 kg

DRUGS (9)
  1. OXYCONTIN [Suspect]
     Active Substance: OXYCODONE HYDROCHLORIDE
     Indication: PRODUCT USED FOR UNKNOWN INDICATION
     Dosage: 80 MG, DAILY
     Route: 065
     Dates: start: 20021109
  2. OXYCONTIN [Suspect]
     Active Substance: OXYCODONE HYDROCHLORIDE
     Dosage: 100 UNK, UNK
     Route: 048
     Dates: end: 20021109
  3. MARIJUANA [Suspect]
     Active Substance: CANNABIS SATIVA SUBSP. INDICA TOP
     Indication: PRODUCT USED FOR UNKNOWN INDICATION
     Route: 065
  4. VICODIN [Suspect]
     Active Substance: ACETAMINOPHEN\HYDROCODONE BITARTRATE
     Indication: PRODUCT USED FOR UNKNOWN INDICATION
     Route: 065
  5. ALCOHOL. [Suspect]
     Active Substance: ALCOHOL
     Indication: PRODUCT USED FOR UNKNOWN INDICATION
     Route: 065
  6. METHADONE [Suspect]
     Active Substance: METHADONE HYDROCHLORIDE
     Indication: PRODUCT USED FOR UNKNOWN INDICATION
     Dosage: UNK MG, UNK
     Route: 065
  7. COCAINE [Suspect]
     Active Substance: COCAINE
     Indication: PRODUCT USED FOR UNKNOWN INDICATION
     Dosage: UNK, UNK
     Route: 065
  8. PERCOCET                           /00446701/ [Suspect]
     Active Substance: ACETAMINOPHEN\OXYCODONE HYDROCHLORIDE\OXYCODONE TEREPHTHALATE
     Indication: PRODUCT USED FOR UNKNOWN INDICATION
     Route: 065
  9. HEROIN [Suspect]
     Active Substance: DIAMORPHINE
     Indication: PRODUCT USED FOR UNKNOWN INDICATION
     Dosage: UNK
     Route: 055

REACTIONS (29)
  - Drug abuse [Unknown]
  - Pulmonary congestion [Unknown]
  - Suicidal ideation [Unknown]
  - Dysphoria [Unknown]
  - Choking [Fatal]
  - Cardiac arrest [Fatal]
  - Alcohol rehabilitation [Unknown]
  - Anxiety [Unknown]
  - Major depression [Unknown]
  - Hyperhidrosis [Unknown]
  - Pain [Unknown]
  - Vomiting [Fatal]
  - Dependence [Unknown]
  - Drug detoxification [Unknown]
  - Diarrhoea [Unknown]
  - Dyspnoea [Fatal]
  - Drug dependence [Unknown]
  - Tremor [Unknown]
  - Paraesthesia [Unknown]
  - Accidental overdose [Fatal]
  - Brain oedema [Unknown]
  - Cardiomegaly [Unknown]
  - Nausea [Unknown]
  - Myalgia [Unknown]
  - Apnoea [Fatal]
  - Loss of consciousness [Unknown]
  - Hypoaesthesia [Unknown]
  - Drug withdrawal syndrome [Unknown]
  - Imprisonment [Unknown]

NARRATIVE: CASE EVENT DATE: 20030222
